FAERS Safety Report 11621580 (Version 1)
Quarter: 2015Q4

REPORT INFORMATION
  Report Type: Spontaneous
  Country: CH (occurrence: CH)
  Receive Date: 20151013
  Receipt Date: 20151013
  Transmission Date: 20160304
  Serious: Yes (Death)
  Sender: FDA-Public Use
  Company Number: PHHY2015CH120606

PATIENT
  Age: 9 Year
  Sex: Male

DRUGS (1)
  1. RIFAMPICIN+ISONIAZID+PYRAZINAMIDE+ETHAMBUTOL HYDROCHLORIDE [Suspect]
     Active Substance: ETHAMBUTOL HYDROCHLORIDE\ISONIAZID\PYRAZINAMIDE\RIFAMPIN
     Indication: TUBERCULOSIS
     Dosage: 1 DF, UNK
     Route: 065

REACTIONS (4)
  - Multiple-drug resistance [Fatal]
  - Hemiplegia [None]
  - Malnutrition [None]
  - Lymph node tuberculosis [None]
